FAERS Safety Report 23324389 (Version 1)
Quarter: 2023Q4

REPORT INFORMATION
  Report Type: Spontaneous
  Country: US (occurrence: US)
  Receive Date: 20231221
  Receipt Date: 20231221
  Transmission Date: 20240110
  Serious: No
  Sender: FDA-Public Use
  Company Number: US-APOTEX-2023AP016481

PATIENT
  Sex: Male

DRUGS (1)
  1. BIMATOPROST [Suspect]
     Active Substance: BIMATOPROST
     Indication: Product used for unknown indication
     Dosage: UNK
     Route: 047

REACTIONS (5)
  - Product delivery mechanism issue [Unknown]
  - Device difficult to use [Unknown]
  - Accidental exposure to product [Unknown]
  - Incorrect dose administered by device [Unknown]
  - Product dose omission issue [Unknown]

NARRATIVE: CASE EVENT DATE: 20231106
